FAERS Safety Report 12344276 (Version 1)
Quarter: 2016Q2

REPORT INFORMATION
  Report Type: Spontaneous
  Country: US (occurrence: US)
  Receive Date: 20160507
  Receipt Date: 20160507
  Transmission Date: 20160815
  Serious: No
  Sender: FDA-Public Use
  Company Number: US-JNJFOC-20160328708

PATIENT
  Sex: Female
  Weight: 103.87 kg

DRUGS (1)
  1. XARELTO [Suspect]
     Active Substance: RIVAROXABAN
     Indication: PULMONARY EMBOLISM
     Route: 048
     Dates: start: 201504, end: 201603

REACTIONS (5)
  - Rash generalised [Not Recovered/Not Resolved]
  - Sunburn [Not Recovered/Not Resolved]
  - Confusional state [Recovered/Resolved]
  - Visual impairment [Unknown]
  - Drug hypersensitivity [Unknown]

NARRATIVE: CASE EVENT DATE: 2015
